FAERS Safety Report 21986707 (Version 1)
Quarter: 2023Q1

REPORT INFORMATION
  Report Type: Spontaneous
  Country: US (occurrence: US)
  Receive Date: 20230213
  Receipt Date: 20230213
  Transmission Date: 20230417
  Serious: Yes (Hospitalization, Other)
  Sender: FDA-Public Use
  Company Number: US-ALXN-A202301675

PATIENT
  Age: 57 Year
  Sex: Female

DRUGS (1)
  1. SOLIRIS [Suspect]
     Active Substance: ECULIZUMAB
     Indication: Atypical haemolytic uraemic syndrome
     Dosage: UNK
     Route: 065

REACTIONS (7)
  - Candida infection [Unknown]
  - Immunodeficiency [Unknown]
  - Wound [Unknown]
  - Platelet count decreased [Unknown]
  - Contusion [Unknown]
  - Skin disorder [Unknown]
  - Medical device site fistula [Unknown]
